FAERS Safety Report 16363912 (Version 1)
Quarter: 2019Q2

REPORT INFORMATION
  Report Type: Spontaneous
  Country: US (occurrence: US)
  Receive Date: 20190528
  Receipt Date: 20190528
  Transmission Date: 20190711
  Serious: No
  Sender: FDA-Public Use
  Company Number: US-SHIRE-US201909706

PATIENT
  Age: 37 Year
  Sex: Female
  Weight: 74.83 kg

DRUGS (1)
  1. XIIDRA [Suspect]
     Active Substance: LIFITEGRAST
     Indication: DRY EYE
     Dosage: 1 GTT DROPS, 2X/DAY:BID
     Route: 047
     Dates: start: 20181130, end: 20181211

REACTIONS (3)
  - Eyelid oedema [Recovered/Resolved]
  - Instillation site inflammation [Unknown]
  - Instillation site discomfort [Unknown]

NARRATIVE: CASE EVENT DATE: 20181130
